FAERS Safety Report 10015892 (Version 1)
Quarter: 2014Q1

REPORT INFORMATION
  Report Type: Spontaneous
  Country: US (occurrence: US)
  Receive Date: 20140317
  Receipt Date: 20140317
  Transmission Date: 20141002
  Serious: Yes (Other)
  Sender: FDA-Public Use
  Company Number: US-BRISTOL-MYERS SQUIBB COMPANY-20491973

PATIENT
  Age: 58 Year
  Sex: Female
  Weight: 97.5 kg

DRUGS (17)
  1. ORENCIA [Suspect]
     Indication: RHEUMATOID ARTHRITIS
  2. IBUPROFEN [Interacting]
     Indication: MUSCULOSKELETAL STIFFNESS
  3. ASPIRIN [Interacting]
  4. ENBREL [Suspect]
     Indication: RHEUMATOID ARTHRITIS
  5. TOPROL [Concomitant]
  6. SPIRONOLACTONE [Concomitant]
  7. LOSARTAN [Concomitant]
  8. XANAX [Concomitant]
  9. PREMARIN [Concomitant]
  10. MELOXICAM [Concomitant]
  11. KLOR-CON [Concomitant]
  12. FENTANYL [Concomitant]
  13. VITAMIN D3 [Concomitant]
  14. VITAMIN D3 [Concomitant]
  15. DIOVAN [Concomitant]
  16. LASIX [Concomitant]
  17. METHOTREXATE [Concomitant]
     Dosage: 15 MG ON SUNDAY AND 15 MG ON WEDNESDAY
     Route: 058

REACTIONS (8)
  - Atrial fibrillation [Unknown]
  - Arthralgia [Unknown]
  - Synovitis [Unknown]
  - Sleep disorder [Unknown]
  - Thrombosis [Unknown]
  - Drug interaction [Unknown]
  - Joint stiffness [Unknown]
  - Hypersensitivity [Unknown]
